FAERS Safety Report 24612714 (Version 1)
Quarter: 2024Q4

REPORT INFORMATION
  Report Type: Spontaneous
  Country: US (occurrence: US)
  Receive Date: 20241113
  Receipt Date: 20241113
  Transmission Date: 20250115
  Serious: No
  Sender: BLUEPRINT MEDICINES
  Company Number: US-Blueprint Medicines Corporation-5275

PATIENT
  Age: 58 Year
  Sex: Female

DRUGS (1)
  1. AYVAKIT [Suspect]
     Active Substance: AVAPRITINIB
     Indication: Systemic mastocytosis
     Route: 065
     Dates: start: 20220613

REACTIONS (11)
  - Vomiting [Unknown]
  - Nausea [Unknown]
  - Eye swelling [Unknown]
  - Swelling of eyelid [Unknown]
  - Periorbital swelling [Unknown]
  - Ocular discomfort [Unknown]
  - Memory impairment [Unknown]
  - Fatigue [Unknown]
  - Asthenia [Unknown]
  - Depression [Unknown]
  - Feeling abnormal [Unknown]
